FAERS Safety Report 6024885-0 (Version None)
Quarter: 2008Q4

REPORT INFORMATION
  Report Type: 
  Country: None (occurrence: None)
  Receive Date: 20081231
  Receipt Date: 20081222
  Transmission Date: 20090506
  Serious: Yes (Other)
  Sender: FDA-Public Use
  Company Number: ZA-PFIZER INC-2008098016

PATIENT

DRUGS (4)
  1. CELEBREX [Suspect]
     Route: 048
  2. CELEBREX [Suspect]
     Route: 048
  3. ELTROXIN [Concomitant]
  4. WARFARIN [Concomitant]

REACTIONS (1)
  - HAEMORRHAGE [None]
